FAERS Safety Report 8072930-3 (Version None)
Quarter: 2012Q1

REPORT INFORMATION
  Report Type: 
  Country: None (occurrence: None)
  Receive Date: 20120126
  Receipt Date: 20120124
  Transmission Date: 20120608
  Serious: Yes (Disabling)
  Sender: FDA-Public Use
  Company Number: IT-PFIZER INC-2011309619

PATIENT
  Age: 75 Year
  Sex: Male

DRUGS (10)
  1. CORDARONE [Concomitant]
  2. LEVOTHYROXINE SODIUM [Concomitant]
  3. OMEPRAZOLE [Concomitant]
  4. ADALAT [Concomitant]
  5. PAMIDRONATE DISODIUM [Suspect]
     Indication: RENAL CELL CARCINOMA
     Dosage: UNK
     Route: 042
     Dates: start: 20110101, end: 20111027
  6. LASIX [Concomitant]
  7. PERIDON [Concomitant]
  8. UNIPRIL [Concomitant]
  9. SUTENT [Suspect]
     Indication: RENAL CELL CARCINOMA
     Dosage: UNK
     Route: 048
     Dates: start: 20110127, end: 20111201
  10. VALPRESSION [Concomitant]

REACTIONS (1)
  - OSTEONECROSIS [None]
